FAERS Safety Report 5851253-4 (Version None)
Quarter: 2008Q3

REPORT INFORMATION
  Report Type: 
  Country: None (occurrence: None)
  Receive Date: 20080820
  Receipt Date: 20080815
  Transmission Date: 20090109
  Serious: Yes (Hospitalization)
  Sender: FDA-Public Use
  Company Number: US-WATSON-2008-04938

PATIENT
  Sex: Female

DRUGS (4)
  1. OXYTROL [Suspect]
     Indication: POLLAKIURIA
     Dosage: 3.9 MG, 2/WEEK
     Route: 062
     Dates: start: 20080808
  2. OXYTROL [Suspect]
     Indication: INCONTINENCE
     Dosage: 3.9 MG, 2/WEEK
     Route: 062
     Dates: start: 20080501, end: 20080808
  3. AGGRENOX [Concomitant]
     Indication: ANTICOAGULANT THERAPY
     Dosage: 25 MG, BID
     Route: 048
     Dates: start: 20080101
  4. ASPIRIN [Concomitant]
     Indication: CARDIAC DISORDER
     Dosage: 81 MG, DAILY
     Route: 048
     Dates: start: 20070101

REACTIONS (3)
  - CHEST PAIN [None]
  - CORONARY ARTERY BYPASS [None]
  - DRUG INEFFECTIVE [None]
